FAERS Safety Report 7984483-6 (Version None)
Quarter: 2011Q4

REPORT INFORMATION
  Report Type: 
  Country: None (occurrence: None)
  Receive Date: 20111214
  Receipt Date: 20111207
  Transmission Date: 20120403
  Serious: Yes (Life-Threatening)
  Sender: FDA-Public Use
  Company Number: AUR-APL-2011-06035

PATIENT
  Sex: Male
  Weight: 110 kg

DRUGS (4)
  1. FLUVASTATIN SODIUM [Suspect]
     Indication: LIPID METABOLISM DISORDER
     Dosage: (20 MG),ORAL
     Route: 048
     Dates: start: 20101015, end: 20101103
  2. SIMVASTATIN [Suspect]
     Indication: LIPID METABOLISM DISORDER
     Dosage: (20 MG),ORAL
     Route: 048
     Dates: start: 20100821, end: 20101015
  3. PRAVASTATIN [Suspect]
     Indication: LIPID METABOLISM DISORDER
     Dosage: ORAL
     Route: 048
     Dates: start: 20101006, end: 20101008
  4. EZETIMIBE [Suspect]
     Indication: LIPID METABOLISM DISORDER
     Dosage: (10 MG),ORAL
     Route: 048
     Dates: start: 20110120, end: 20110908

REACTIONS (3)
  - ABASIA [None]
  - RHABDOMYOLYSIS [None]
  - CRUSH SYNDROME [None]
